FAERS Safety Report 9592886 (Version 2)
Quarter: 2013Q4

REPORT INFORMATION
  Report Type: Report from Study
  Country: US (occurrence: US)
  Receive Date: 20131004
  Receipt Date: 20131004
  Transmission Date: 20140711
  Serious: Yes (Other)
  Sender: FDA-Public Use
  Company Number: PHEH2013US018750

PATIENT
  Age: 41 Year
  Sex: Female

DRUGS (2)
  1. TOBI PODHALER [Suspect]
     Indication: CYSTIC FIBROSIS
     Dosage: 112 MG, BID
  2. TOBI PODHALER [Suspect]
     Dosage: 84 MG, BID
     Dates: start: 20130819, end: 20130824

REACTIONS (7)
  - Bacterial disease carrier [Unknown]
  - Infective pulmonary exacerbation of cystic fibrosis [Unknown]
  - Upper respiratory tract irritation [Recovered/Resolved]
  - Throat tightness [Recovered/Resolved]
  - Laryngitis [Unknown]
  - Drug intolerance [Unknown]
  - Chest discomfort [Unknown]
